FAERS Safety Report 9827443 (Version 1)
Quarter: 2014Q1

REPORT INFORMATION
  Report Type: Spontaneous
  Country: US (occurrence: None)
  Receive Date: 20140116
  Receipt Date: 20140116
  Transmission Date: 20141002
  Serious: No
  Sender: FDA-Public Use
  Company Number: None

PATIENT
  Age: 56 Year
  Sex: Male
  Weight: 92.99 kg

DRUGS (4)
  1. PLAVIX [Suspect]
     Indication: THROMBOSIS
     Dosage: BY MOUTH
     Dates: start: 20141204, end: 20141206
  2. ENALAPRIL [Concomitant]
  3. GABAPENTIN [Concomitant]
  4. MULTI-VITAMIN [Concomitant]

REACTIONS (4)
  - Dizziness [None]
  - Nausea [None]
  - Vomiting [None]
  - Diarrhoea [None]
